FAERS Safety Report 22936634 (Version 3)
Quarter: 2024Q1

REPORT INFORMATION
  Report Type: Spontaneous
  Country: CZ (occurrence: CZ)
  Receive Date: 20230912
  Receipt Date: 20240122
  Transmission Date: 20240410
  Serious: Yes (Hospitalization)
  Sender: FDA-Public Use
  Company Number: CZ-HALEON-CZCH2023EME040282

PATIENT
  Age: 15 Month
  Sex: Female

DRUGS (1)
  1. IBUPROFEN [Suspect]
     Active Substance: IBUPROFEN
     Indication: Product used for unknown indication
     Dosage: UNK
     Route: 048

REACTIONS (7)
  - Dysphonia [Recovered/Resolved]
  - Toxicity to various agents [Unknown]
  - Accidental exposure to product by child [Recovered/Resolved]
  - Monocytosis [Unknown]
  - Eosinophilia [Unknown]
  - Aspartate aminotransferase increased [Unknown]
  - Product residue present [Unknown]
